FAERS Safety Report 5323306-0 (Version None)
Quarter: 2007Q2

REPORT INFORMATION
  Report Type: 
  Country: None (occurrence: None)
  Receive Date: 20070221
  Receipt Date: 20061208
  Transmission Date: 20071010
  Serious: Yes (Hospitalization)
  Sender: FDA-Public Use
  Company Number: BDI-008920

PATIENT
  Age: 72 Year
  Sex: Male

DRUGS (1)
  1. ISOVUE-370 [Suspect]
     Indication: CHEST PAIN
     Dosage: 100 ML ONCE IV
     Route: 042
     Dates: start: 20061204, end: 20061204

REACTIONS (1)
  - CARDIO-RESPIRATORY ARREST [None]
